FAERS Safety Report 16107513 (Version 2)
Quarter: 2019Q2

REPORT INFORMATION
  Report Type: Report from Study
  Country: HU (occurrence: HU)
  Receive Date: 20190322
  Receipt Date: 20190415
  Transmission Date: 20190711
  Serious: Yes (Death, Hospitalization)
  Sender: FDA-Public Use
  Company Number: HU-ASTRAZENECA-2019SE45288

PATIENT
  Age: 12 Day
  Sex: Male

DRUGS (1)
  1. SYNAGIS [Suspect]
     Active Substance: PALIVIZUMAB
     Indication: ANTIVIRAL PROPHYLAXIS
     Dosage: 100MG/ML; SYNAGIS WAS GIVEN BASED ON BODY WEIGHT
     Route: 030
     Dates: start: 20190226

REACTIONS (4)
  - Necrotising colitis [Unknown]
  - Bacterial sepsis [Fatal]
  - General physical health deterioration [Fatal]
  - Gastrointestinal disorder [Unknown]

NARRATIVE: CASE EVENT DATE: 20190228
